FAERS Safety Report 15587914 (Version 1)
Quarter: 2018Q4

REPORT INFORMATION
  Report Type: Spontaneous
  Country: US (occurrence: US)
  Receive Date: 20181105
  Receipt Date: 20181105
  Transmission Date: 20190205
  Serious: Yes (Hospitalization, Other)
  Sender: FDA-Public Use
  Company Number: US-WALGREENS PREMIER BRANDS OF AMERICA INC.-2058434

PATIENT
  Age: 87 Year
  Sex: Female

DRUGS (1)
  1. LIQUID CORN AND CALLUS REMOVER [Suspect]
     Active Substance: SALICYLIC ACID
     Indication: HYPERKERATOSIS
     Route: 061
     Dates: start: 20171211, end: 20171212

REACTIONS (1)
  - Toe amputation [Recovering/Resolving]

NARRATIVE: CASE EVENT DATE: 20180909
